FAERS Safety Report 6035116-X (Version None)
Quarter: 2009Q1

REPORT INFORMATION
  Report Type: 
  Country: None (occurrence: None)
  Receive Date: 20090112
  Receipt Date: 20090109
  Transmission Date: 20090719
  Serious: Yes (Hospitalization)
  Sender: FDA-Public Use
  Company Number: US-B.I. PHARMACEUTICALS,INC./RIDGEFIELD-2009-BP-00217BP

PATIENT
  Sex: Male

DRUGS (5)
  1. MICARDIS [Suspect]
     Indication: HYPERTENSION
     Route: 048
     Dates: start: 20081016
  2. PAZOPANIB [Suspect]
     Indication: NEOPLASM MALIGNANT
     Dosage: 400MG
     Route: 048
     Dates: start: 20081001
  3. PACLITAXEL [Suspect]
     Indication: NEOPLASM MALIGNANT
     Route: 042
     Dates: start: 20081001
  4. LAPATINIB [Suspect]
     Indication: NEOPLASM MALIGNANT
     Dosage: 1000MG
     Route: 048
     Dates: start: 20081002
  5. METOPROLOL TARTRATE [Concomitant]
     Dates: start: 20081016

REACTIONS (2)
  - DEHYDRATION [None]
  - HYPOTENSION [None]
